FAERS Safety Report 6785064-2 (Version None)
Quarter: 2010Q2

REPORT INFORMATION
  Report Type: 
  Country: None (occurrence: None)
  Receive Date: 20100622
  Receipt Date: 20100615
  Transmission Date: 20101027
  Serious: Yes (Other)
  Sender: FDA-Public Use
  Company Number: US-GENENTECH-303122

PATIENT
  Sex: Female
  Weight: 96.4 kg

DRUGS (3)
  1. RITUXAN [Suspect]
     Indication: RHEUMATOID ARTHRITIS
     Dosage: 1000 MG, Q6M
     Route: 042
     Dates: start: 20071201, end: 20091201
  2. CHOLESTEROL LOWERING DRUG [Concomitant]
     Indication: HYPERLIPIDAEMIA
  3. METHOTREXATE [Concomitant]
     Indication: DRUG USE FOR UNKNOWN INDICATION

REACTIONS (1)
  - GASTRITIS [None]
